FAERS Safety Report 19964357 (Version 1)
Quarter: 2021Q4

REPORT INFORMATION
  Report Type: Report from Study
  Country: US (occurrence: US)
  Receive Date: 20211018
  Receipt Date: 20211018
  Transmission Date: 20220303
  Serious: Yes (Other)
  Sender: FDA-Public Use
  Company Number: US-TAKEDA-2021TUS034665

PATIENT
  Age: 41 Year
  Sex: Female

DRUGS (11)
  1. TEDUGLUTIDE [Suspect]
     Active Substance: TEDUGLUTIDE
     Indication: Product used for unknown indication
     Dosage: 5.0 MILLIGRAM,(0.05MG/KG), QD
     Route: 065
     Dates: start: 20150522
  2. TEDUGLUTIDE [Suspect]
     Active Substance: TEDUGLUTIDE
     Indication: Product used for unknown indication
     Dosage: 5.0 MILLIGRAM,(0.05MG/KG), QD
     Route: 065
     Dates: start: 20150522
  3. TEDUGLUTIDE [Suspect]
     Active Substance: TEDUGLUTIDE
     Indication: Product used for unknown indication
     Dosage: 5.0 MILLIGRAM,(0.05MG/KG), QD
     Route: 065
     Dates: start: 20150522
  4. TEDUGLUTIDE [Suspect]
     Active Substance: TEDUGLUTIDE
     Indication: Product used for unknown indication
     Dosage: 5.0 MILLIGRAM,(0.05MG/KG), QD
     Route: 065
     Dates: start: 20150522
  5. SULFAMETHOXAZOLE AND TRIMETHOPRIM [Concomitant]
     Active Substance: SULFAMETHOXAZOLE\TRIMETHOPRIM
     Indication: Bacterial infection
     Dosage: 160 MILLIGRAM, 1/2 TAB MWF
     Route: 048
     Dates: start: 20210413
  6. SULFAMETHOXAZOLE AND TRIMETHOPRIM [Concomitant]
     Active Substance: SULFAMETHOXAZOLE\TRIMETHOPRIM
     Indication: Prophylaxis
  7. VALGANCICLOVIR [Concomitant]
     Active Substance: VALGANCICLOVIR
     Indication: Bacterial infection
     Dosage: 900 MILLIGRAM, BID
     Route: 048
     Dates: start: 20210308
  8. VALGANCICLOVIR [Concomitant]
     Active Substance: VALGANCICLOVIR
     Indication: Prophylaxis
  9. OXYCODONE [Concomitant]
     Active Substance: OXYCODONE
     Indication: Pain
     Dosage: 5 MILLIGRAM, BID
     Route: 048
     Dates: start: 20210414
  10. NYSTATIN [Concomitant]
     Active Substance: NYSTATIN
     Indication: Fungal infection
     Dosage: 5 MILLILITER, QID
     Route: 048
     Dates: start: 20201202
  11. NYSTATIN [Concomitant]
     Active Substance: NYSTATIN
     Indication: Prophylaxis

REACTIONS (3)
  - Volvulus [Recovered/Resolved]
  - Intestinal malrotation [Recovered/Resolved]
  - Intestinal transplant [Recovered/Resolved]

NARRATIVE: CASE EVENT DATE: 20201122
